FAERS Safety Report 9310242 (Version 4)
Quarter: 2013Q4

REPORT INFORMATION
  Report Type: Report from Study
  Country: CA (occurrence: CA)
  Receive Date: 20130527
  Receipt Date: 20131224
  Transmission Date: 20140711
  Serious: Yes (Hospitalization, Other)
  Sender: FDA-Public Use
  Company Number: PHHY2012CA101504

PATIENT
  Age: 78 Year
  Sex: Female

DRUGS (4)
  1. SANDOSTATIN LAR [Suspect]
     Indication: ANGIODYSPLASIA
     Dosage: 20 MG, QMO
     Route: 030
     Dates: start: 20120610
  2. SANDOSTATIN LAR [Suspect]
     Dosage: 20 MG, EVERY FOUR WEEKS
     Route: 030
  3. SANDOSTATIN LAR [Suspect]
     Dosage: 20 MG, QMO
     Route: 030
  4. IRON [Concomitant]
     Dosage: UNK UKN, UNK
     Route: 042

REACTIONS (5)
  - Haemoglobin decreased [Unknown]
  - Macular degeneration [Unknown]
  - Blood pressure systolic increased [Unknown]
  - Intestinal haemorrhage [Recovering/Resolving]
  - Fatigue [Unknown]
